FAERS Safety Report 7016454-0 (Version None)
Quarter: 2010Q3

REPORT INFORMATION
  Report Type: 
  Country: None (occurrence: None)
  Receive Date: 20100909
  Receipt Date: 20100512
  Transmission Date: 20110219
  Serious: Yes (Other)
  Sender: FDA-Public Use
  Company Number: 2010SP026786

PATIENT
  Age: 23 Year
  Sex: Male

DRUGS (2)
  1. SAPHRIS [Suspect]
     Indication: BIPOLAR DISORDER
     Dosage: 5 MG;HS;SL
     Route: 060
     Dates: start: 20100509, end: 20100509
  2. ALCOHOL [Suspect]
     Indication: PARANOIA
     Dosage: PO

REACTIONS (1)
  - MANIA [None]
